FAERS Safety Report 10094853 (Version 2)
Quarter: 2014Q3

REPORT INFORMATION
  Report Type: Spontaneous
  Country: RU (occurrence: RU)
  Receive Date: 20140422
  Receipt Date: 20140806
  Transmission Date: 20150326
  Serious: Yes (Death, Hospitalization, Other)
  Sender: FDA-Public Use
  Company Number: RU-UCBSA-118377

PATIENT
  Age: 30 Year
  Sex: Male

DRUGS (1)
  1. CIMZIA [Suspect]
     Active Substance: CERTOLIZUMAB PEGOL
     Indication: RHEUMATOID ARTHRITIS
     Dosage: DOSE UNKNOWN
     Dates: start: 2012, end: 201312

REACTIONS (3)
  - Pulmonary embolism [Fatal]
  - Infectious pleural effusion [Unknown]
  - Meningitis tuberculous [Unknown]

NARRATIVE: CASE EVENT DATE: 201312
